FAERS Safety Report 14290983 (Version 8)
Quarter: 2022Q2

REPORT INFORMATION
  Report Type: Report from Study
  Country: FR (occurrence: FR)
  Receive Date: 20171215
  Receipt Date: 20220425
  Transmission Date: 20220721
  Serious: Yes (Death, Hospitalization)
  Sender: FDA-Public Use
  Company Number: FR-PFIZER INC-2017525892

PATIENT
  Age: 61 Year
  Sex: Female
  Weight: 60 kg

DRUGS (2)
  1. SUTENT [Suspect]
     Active Substance: SUNITINIB MALATE
     Indication: Metastatic renal cell carcinoma
     Dosage: 50 MG, CYCLIC (4 WEEKS ON, 2 WEEKS OFF)
     Dates: start: 20170515, end: 20170723
  2. SUTENT [Suspect]
     Active Substance: SUNITINIB MALATE
     Dosage: 37.5 MG, CYCLIC (4 WEEKS ON,2 WEEKS OFF)
     Dates: start: 20170807

REACTIONS (20)
  - General physical health deterioration [Fatal]
  - Neoplasm progression [Fatal]
  - Hypercalcaemia of malignancy [Fatal]
  - Petechiae [Fatal]
  - Thrombocytopenia [Unknown]
  - Asthenia [Unknown]
  - Decreased appetite [Unknown]
  - Weight decreased [Unknown]
  - Malnutrition [Unknown]
  - Blood albumin decreased [Unknown]
  - Escherichia urinary tract infection [Unknown]
  - Pneumonia aspiration [Unknown]
  - Neuropathy peripheral [Recovering/Resolving]
  - Fatigue [Recovering/Resolving]
  - Diarrhoea [Unknown]
  - Vomiting [Not Recovered/Not Resolved]
  - Dysgeusia [Unknown]
  - Decreased appetite [Recovering/Resolving]
  - Hypothyroidism [Not Recovered/Not Resolved]
  - Iron deficiency [Not Recovered/Not Resolved]

NARRATIVE: CASE EVENT DATE: 20170529
